FAERS Safety Report 19299927 (Version 1)
Quarter: 2021Q2

REPORT INFORMATION
  Report Type: Spontaneous
  Country: GB (occurrence: GB)
  Receive Date: 20210525
  Receipt Date: 20210525
  Transmission Date: 20210717
  Serious: Yes (Life-Threatening)
  Sender: FDA-Public Use
  Company Number: GB-CIPLA LTD.-2021GB03683

PATIENT

DRUGS (7)
  1. SALBUTAMOL [Suspect]
     Active Substance: ALBUTEROL
     Indication: ANAPHYLACTIC REACTION
     Dosage: UNK
  2. EMERADE [Suspect]
     Active Substance: EPINEPHRINE BITARTRATE
     Indication: ANAPHYLACTIC REACTION
     Dosage: 500 MICROGRAM, 4 DOSES WERE ADMINISTERED OVER 20 MINUTES, ALTERNATING LIMBS FOR INJECTION
     Route: 030
  3. SALINE [SODIUM CHLORIDE] [Suspect]
     Active Substance: SODIUM CHLORIDE
     Indication: ANAPHYLACTIC REACTION
     Dosage: 500 MILLILITER
     Route: 042
  4. ADRENALINE [EPINEPHRINE] [Suspect]
     Active Substance: EPINEPHRINE
     Indication: ANAPHYLACTIC REACTION
     Dosage: 0.1 UG/KG/MIN AT 40 MINUTES AFTER ONSET, A PERIPHERAL ADRENALINE INFUSION OF 0.1 MCG/KG/MIN
     Route: 042
  5. CHLORPHENAMINE [Suspect]
     Active Substance: CHLORPHENIRAMINE MALEATE
     Indication: ANAPHYLACTIC REACTION
     Dosage: UNK
     Route: 042
  6. HYDROCORTISONE. [Suspect]
     Active Substance: HYDROCORTISONE
     Indication: ANAPHYLACTIC REACTION
     Dosage: UNK
     Route: 042
  7. EMERADE [Suspect]
     Active Substance: EPINEPHRINE BITARTRATE
     Dosage: 500 MICROGRAM, 4 DOSES WERE ADMINISTERED OVER 20 MINUTES, ALTERNATING LIMBS FOR INJECTION
     Route: 030

REACTIONS (1)
  - Drug ineffective [Recovered/Resolved]
